FAERS Safety Report 6111973-3 (Version None)
Quarter: 2009Q1

REPORT INFORMATION
  Report Type: 
  Country: None (occurrence: None)
  Receive Date: 20090310
  Receipt Date: 20090218
  Transmission Date: 20090719
  Serious: Yes (Hospitalization, Other)
  Sender: FDA-Public Use
  Company Number: 6049127

PATIENT
  Age: 1 Month

DRUGS (2)
  1. LEVOTHYROXINE SODIUM [Suspect]
     Indication: DRUG EXPOSURE VIA BREAST MILK
     Dosage: 50 MCG (50 MCG, 1 IN 1 D) TRANSMAMMARY
     Route: 063
     Dates: start: 20081201
  2. HEPARIN [Concomitant]

REACTIONS (2)
  - CEREBROVASCULAR ACCIDENT [None]
  - DRUG EXPOSURE VIA BREAST MILK [None]
